FAERS Safety Report 11716700 (Version 1)
Quarter: 2015Q4

REPORT INFORMATION
  Report Type: Spontaneous
  Country: MX (occurrence: MX)
  Receive Date: 20151109
  Receipt Date: 20151109
  Transmission Date: 20160304
  Serious: Yes (Death)
  Sender: FDA-Public Use
  Company Number: MX-PURDUE PHARMA-GBR-2015-0031988

PATIENT
  Sex: Female

DRUGS (1)
  1. SOLORO7 [Suspect]
     Active Substance: BUPRENORPHINE
     Indication: PAIN
     Dosage: 10 MCG, Q1H
     Route: 062

REACTIONS (1)
  - Myocardial infarction [Fatal]
